FAERS Safety Report 9633365 (Version 1)
Quarter: 2013Q4

REPORT INFORMATION
  Report Type: Report from Study
  Country: BR (occurrence: BR)
  Receive Date: 20131021
  Receipt Date: 20131021
  Transmission Date: 20140711
  Serious: Yes (Other)
  Sender: FDA-Public Use
  Company Number: BR-ROCHE-1291466

PATIENT
  Age: 61 Year
  Sex: Female
  Weight: 66 kg

DRUGS (2)
  1. PEG-INTERFERON ALFA 2A [Suspect]
     Indication: HEPATITIS C
     Route: 065
     Dates: start: 20110103
  2. RIBAVIRIN [Suspect]
     Indication: HEPATITIS C
     Route: 065
     Dates: start: 20110103

REACTIONS (1)
  - Viral load increased [Unknown]
